FAERS Safety Report 4301928-3 (Version None)
Quarter: 2004Q1

REPORT INFORMATION
  Report Type: 
  Country: None (occurrence: None)
  Receive Date: 20040220
  Receipt Date: 20040212
  Transmission Date: 20041129
  Serious: Yes (Hospitalization)
  Sender: FDA-Public Use
  Company Number: IT-JNJFOC-20040202866

PATIENT
  Age: 69 Year
  Sex: Male

DRUGS (5)
  1. REMICADE [Suspect]
     Indication: RHEUMATOID ARTHRITIS
     Dosage: 222 MG, 1 IN 8 WEEK, INTRAVENOUS
     Route: 042
     Dates: start: 20021017, end: 20030903
  2. PREDNISONE [Concomitant]
  3. AROFEXX (ROFECOXIB) [Concomitant]
  4. NORVASC [Concomitant]
  5. ARAVA [Concomitant]

REACTIONS (2)
  - ATRIAL FIBRILLATION [None]
  - PERICARDITIS [None]
